FAERS Safety Report 22100437 (Version 2)
Quarter: 2023Q1

REPORT INFORMATION
  Report Type: Report from Study
  Country: TR (occurrence: TR)
  Receive Date: 20230316
  Receipt Date: 20230331
  Transmission Date: 20230418
  Serious: Yes (Other)
  Sender: FDA-Public Use
  Company Number: TR-ABBVIE-4341215

PATIENT
  Sex: Female
  Weight: 61 kg

DRUGS (7)
  1. CARBIDOPA\LEVODOPA [Suspect]
     Active Substance: CARBIDOPA\LEVODOPA
     Indication: Parkinson^s disease
     Dosage: MORNING DOSE (ML): 6.00 CONTINUOUS DOSE (ML): 3.20 EXTRA DOSE (ML): 1.50
     Route: 050
     Dates: start: 20230306, end: 20230328
  2. CARBIDOPA\LEVODOPA [Suspect]
     Active Substance: CARBIDOPA\LEVODOPA
     Dosage: MORNING DOSE (ML): 6.00 CONTINUOUS DOSE (ML): 4.40 EXTRA DOSE (ML): 1.50
     Route: 050
     Dates: start: 20230328
  3. Pramipexole(PEXA-XR) [Concomitant]
     Indication: Parkinson^s disease
     Dosage: 0.75 MG
     Route: 048
  4. Pramipexole(PEXA-XR) [Concomitant]
     Indication: Parkinson^s disease
     Dosage: 0.75 MG FREQUENCY TEXT: 1X 0.5
     Route: 048
  5. Mirtazapine(REDEPRA) [Concomitant]
     Indication: Depression
     Dosage: 30 MILLIGRAM FREQUENCY TEXT: 1X 0.5
     Route: 048
  6. Cyanocobalamin(DODEX) [Concomitant]
     Indication: Vitamin supplementation
     Dosage: 1 MILLIGRAM/MILLILITERS
     Route: 030
  7. Amantadine Sulphate(PK-MERZ) [Concomitant]
     Indication: Parkinson^s disease
     Dosage: 200 MILLIGRAM
     Route: 048

REACTIONS (3)
  - Perforation [Recovered/Resolved]
  - C-reactive protein increased [Recovered/Resolved]
  - Abdominal pain [Recovered/Resolved]

NARRATIVE: CASE EVENT DATE: 20230311
